FAERS Safety Report 12876861 (Version 1)
Quarter: 2016Q4

REPORT INFORMATION
  Report Type: Spontaneous
  Country: US (occurrence: US)
  Receive Date: 20161022
  Receipt Date: 20161022
  Transmission Date: 20170207
  Serious: Yes (Life-Threatening, Disabling, Other)
  Sender: FDA-Public Use
  Company Number: None

PATIENT
  Age: 39 Year
  Sex: Male
  Weight: 90 kg

DRUGS (1)
  1. CYMBALTA [Suspect]
     Active Substance: DULOXETINE HYDROCHLORIDE

REACTIONS (10)
  - Mental disorder [None]
  - Thinking abnormal [None]
  - Suicidal ideation [None]
  - Depression [None]
  - Emotional disorder [None]
  - Toxicity to various agents [None]
  - Paraesthesia [None]
  - Drug ineffective [None]
  - Hepatic pain [None]
  - Abdominal pain upper [None]

NARRATIVE: CASE EVENT DATE: 20111012
